FAERS Safety Report 4418028-4 (Version None)
Quarter: 2004Q3

REPORT INFORMATION
  Report Type: 
  Country: None (occurrence: None)
  Receive Date: 20040803
  Receipt Date: 20040721
  Transmission Date: 20050211
  Serious: Yes (Other)
  Sender: FDA-Public Use
  Company Number: IN-JNJFOC-20040706638

PATIENT
  Age: 3 Month
  Sex: 0

DRUGS (3)
  1. ACETAMINOPHEN [Suspect]
     Indication: RESPIRATORY TRACT INFECTION
  2. BACTRIM [Suspect]
     Indication: RESPIRATORY TRACT INFECTION
  3. CEPHALEXIN [Concomitant]

REACTIONS (6)
  - DRUG ERUPTION [None]
  - LYMPHOCYTIC INFILTRATION [None]
  - SCAR [None]
  - SKIN HYPERPIGMENTATION [None]
  - STEVENS-JOHNSON SYNDROME [None]
  - TOXIC EPIDERMAL NECROLYSIS [None]
